FAERS Safety Report 23971346 (Version 1)
Quarter: 2024Q2

REPORT INFORMATION
  Report Type: Report from Study
  Country: CA (occurrence: CA)
  Receive Date: 20240613
  Receipt Date: 20240613
  Transmission Date: 20240716
  Serious: Yes (Other)
  Sender: FDA-Public Use
  Company Number: CA-AMGEN-CANSL2024113273

PATIENT
  Age: 76 Year
  Sex: Female

DRUGS (1)
  1. XGEVA [Suspect]
     Active Substance: DENOSUMAB
     Indication: Plasma cell myeloma
     Dosage: 120 MILLIGRAM, Q4WK
     Route: 065
     Dates: start: 20220804

REACTIONS (1)
  - Gingival injury [Recovering/Resolving]
